FAERS Safety Report 19303915 (Version 5)
Quarter: 2023Q2

REPORT INFORMATION
  Report Type: Spontaneous
  Country: CA (occurrence: CA)
  Receive Date: 20210525
  Receipt Date: 20230620
  Transmission Date: 20230722
  Serious: Yes (Other)
  Sender: FDA-Public Use
  Company Number: CA-SAMSUNG BIOEPIS-SB-2021-12503

PATIENT
  Age: 61 Year
  Sex: Female
  Weight: 120 kg

DRUGS (4)
  1. INFLIXIMAB [Suspect]
     Active Substance: INFLIXIMAB
     Indication: Neurosarcoidosis
     Route: 042
  2. INFLIXIMAB [Suspect]
     Active Substance: INFLIXIMAB
     Route: 042
  3. INFLIXIMAB [Suspect]
     Active Substance: INFLIXIMAB
     Route: 042
  4. METHOTREXATE [Concomitant]
     Active Substance: METHOTREXATE
     Indication: Product used for unknown indication
     Dosage: UNKNOWN
     Route: 065

REACTIONS (24)
  - Condition aggravated [Not Recovered/Not Resolved]
  - Inflammation [Not Recovered/Not Resolved]
  - Nodule [Not Recovered/Not Resolved]
  - Infusion site inflammation [Not Recovered/Not Resolved]
  - Abscess [Not Recovered/Not Resolved]
  - Arthropod bite [Not Recovered/Not Resolved]
  - Nerve injury [Not Recovered/Not Resolved]
  - Tooth disorder [Not Recovered/Not Resolved]
  - Bedridden [Not Recovered/Not Resolved]
  - Contusion [Not Recovered/Not Resolved]
  - Gait disturbance [Not Recovered/Not Resolved]
  - Limb injury [Not Recovered/Not Resolved]
  - Muscle spasms [Not Recovered/Not Resolved]
  - Pain [Not Recovered/Not Resolved]
  - Muscle strain [Not Recovered/Not Resolved]
  - Weight bearing difficulty [Not Recovered/Not Resolved]
  - Impaired quality of life [Not Recovered/Not Resolved]
  - Weight increased [Not Recovered/Not Resolved]
  - Blood pressure increased [Not Recovered/Not Resolved]
  - Sinusitis [Not Recovered/Not Resolved]
  - Drug ineffective [Not Recovered/Not Resolved]
  - Intentional product use issue [Not Recovered/Not Resolved]
  - Off label use [Not Recovered/Not Resolved]
  - Product use in unapproved indication [Unknown]
